FAERS Safety Report 5274524-1 (Version None)
Quarter: 2007Q1

REPORT INFORMATION
  Report Type: 
  Country: None (occurrence: None)
  Receive Date: 20070320
  Receipt Date: 20061127
  Transmission Date: 20070707
  Serious: Yes (Hospitalization)
  Sender: FDA-Public Use
  Company Number: GXKR2006FR08591

PATIENT
  Age: 68 Year
  Sex: Male

DRUGS (3)
  1. CAFFEINE, DEXTROPROPOXYPHENE, PARACETAMOL (NGX)(PARACETAMOL) UNKNOWN [Suspect]
     Indication: SCIATICA
     Dosage: 6 CAPSULES
  2. TETRAZEPAM (TETRAZEPAM) [Concomitant]
  3. EZETROL (EZETIMIBE) [Concomitant]

REACTIONS (2)
  - HYPERTENSION [None]
  - VERTIGO [None]
